FAERS Safety Report 15905281 (Version 1)
Quarter: 2019Q1

REPORT INFORMATION
  Report Type: Spontaneous
  Country: US (occurrence: US)
  Receive Date: 20190110
  Receipt Date: 20190110
  Transmission Date: 20190417
  Serious: No
  Sender: FDA-Public Use
  Company Number: None

PATIENT
  Age: 74 Year
  Sex: Female

DRUGS (1)
  1. IMATINIB TAB (X30) 400MG [Suspect]
     Active Substance: IMATINIB
     Route: 048
     Dates: start: 20181110

REACTIONS (2)
  - Peripheral swelling [None]
  - Night sweats [None]

NARRATIVE: CASE EVENT DATE: 20190110
